FAERS Safety Report 16009686 (Version 3)
Quarter: 2019Q1

REPORT INFORMATION
  Report Type: Report from Study
  Country: US (occurrence: US)
  Receive Date: 20190225
  Receipt Date: 20190308
  Transmission Date: 20190418
  Serious: Yes (Disabling)
  Sender: FDA-Public Use
  Company Number: US-GILEAD-2019-0382791

PATIENT
  Age: 64 Year
  Sex: Male
  Weight: 94 kg

DRUGS (6)
  1. OMEPRAZOLE. [Concomitant]
     Active Substance: OMEPRAZOLE
  2. AMBRISENTAN [Suspect]
     Active Substance: AMBRISENTAN
     Indication: PULMONARY ARTERIAL HYPERTENSION
     Dosage: 10 MG, ONCE A DAY
     Route: 065
     Dates: start: 20180516, end: 20190104
  3. TORSEMIDE. [Concomitant]
     Active Substance: TORSEMIDE
  4. SILDENAFIL. [Suspect]
     Active Substance: SILDENAFIL
     Indication: PRODUCT USED FOR UNKNOWN INDICATION
     Dosage: 20 MG, TID
     Route: 065
  5. FLONASE [Concomitant]
     Active Substance: FLUTICASONE PROPIONATE
  6. UPTRAVI [Suspect]
     Active Substance: SELEXIPAG
     Indication: PRODUCT USED FOR UNKNOWN INDICATION
     Dosage: UNK
     Route: 065
     Dates: end: 20190104

REACTIONS (10)
  - Rash [Not Recovered/Not Resolved]
  - Headache [Not Recovered/Not Resolved]
  - Neck pain [Unknown]
  - Haematocrit decreased [Unknown]
  - Myalgia [Not Recovered/Not Resolved]
  - Terminal insomnia [Not Recovered/Not Resolved]
  - Nasopharyngitis [Unknown]
  - Haemoglobin decreased [Unknown]
  - Blood pressure increased [Not Recovered/Not Resolved]
  - Iron deficiency anaemia [Unknown]

NARRATIVE: CASE EVENT DATE: 20181228
